FAERS Safety Report 5188277-9 (Version None)
Quarter: 2006Q4

REPORT INFORMATION
  Report Type: 
  Country: None (occurrence: None)
  Receive Date: 20061221
  Receipt Date: 20061215
  Transmission Date: 20070319
  Serious: Yes (Disabling)
  Sender: FDA-Public Use
  Company Number: FR-GLAXOSMITHKLINE-B0450845A

PATIENT
  Age: 55 Year
  Sex: Female
  Weight: 51 kg

DRUGS (6)
  1. ZELITREX [Suspect]
     Route: 048
     Dates: start: 20051201, end: 20060131
  2. CRESTOR [Suspect]
     Dosage: 10MG UNKNOWN
     Route: 048
     Dates: start: 20051221, end: 20060131
  3. SERESTA [Concomitant]
     Dosage: 50MG UNKNOWN
     Route: 065
  4. MOTILIUM [Concomitant]
     Route: 065
  5. LAMALINE [Concomitant]
     Route: 065
  6. MEPRONIZINE [Concomitant]
     Route: 065
     Dates: end: 20060131

REACTIONS (17)
  - BLOOD CREATINE PHOSPHOKINASE INCREASED [None]
  - BLOOD LACTATE DEHYDROGENASE INCREASED [None]
  - DIARRHOEA [None]
  - EYELID OEDEMA [None]
  - FALL [None]
  - GAMMA-GLUTAMYLTRANSFERASE INCREASED [None]
  - GASTROINTESTINAL HYPERMOTILITY [None]
  - HYPERHIDROSIS [None]
  - MUSCLE ATROPHY [None]
  - MUSCLE HYPERTROPHY [None]
  - MUSCULOSKELETAL CHEST PAIN [None]
  - MUSCULOSKELETAL DISCOMFORT [None]
  - MYALGIA [None]
  - ORAL SOFT TISSUE DISORDER [None]
  - SOMNOLENCE [None]
  - VISUAL DISTURBANCE [None]
  - WEIGHT DECREASED [None]
